FAERS Safety Report 12602500 (Version 1)
Quarter: 2016Q3

REPORT INFORMATION
  Report Type: Spontaneous
  Country: US (occurrence: US)
  Receive Date: 20160728
  Receipt Date: 20160728
  Transmission Date: 20161109
  Serious: No
  Sender: FDA-Public Use
  Company Number: US-BAUSCH-BL-2016-011261

PATIENT
  Age: 68 Year
  Sex: Female

DRUGS (2)
  1. WALGREENS EYE ALLERGY RELIEF [Suspect]
     Active Substance: NAPHAZOLINE HYDROCHLORIDE\PHENIRAMINE MALEATE
     Indication: LACRIMATION INCREASED
     Dosage: 1 DROP 1 HOUR BEFORE LUNCH AND SUPPER IN BOTH EYES
     Route: 047
     Dates: start: 20160509, end: 20160509
  2. RESTASIS [Concomitant]
     Active Substance: CYCLOSPORINE
     Indication: PRODUCT USED FOR UNKNOWN INDICATION

REACTIONS (3)
  - Eye pain [Recovered/Resolved]
  - Off label use [Recovered/Resolved]
  - Eye irritation [Recovered/Resolved]

NARRATIVE: CASE EVENT DATE: 20160509
